FAERS Safety Report 9294927 (Version 1)
Quarter: 2013Q1

REPORT INFORMATION
  Report Type: Spontaneous
  Country: US (occurrence: None)
  Receive Date: 20121227
  Receipt Date: 20121227
  Transmission Date: 20140127
  Serious: No
  Sender: FDA-Public Use
  Company Number: PHEH2012US021233

PATIENT
  Sex: Male
  Weight: 78.9 kg

DRUGS (8)
  1. AFINITOR [Suspect]
     Route: 048
  2. LIPITOR (ATORVASTATIN CALCIUM) [Concomitant]
  3. DIOVAN (VALSARTAN) [Concomitant]
  4. SANDOSTATIN (OCTREOTIDE ACETATE) [Concomitant]
  5. FISH OIL (FISH OIL) [Concomitant]
  6. ADVIL (CHLORPHENNAMINE MALEATE, IBUPROFEN, PHENYLEPHRINE HYDROCHLORIDE) [Concomitant]
  7. ADENINE (ADENINE) [Concomitant]
  8. IMODIUM (LOPERAMIDE HYDROCHLORIDE) [Concomitant]

REACTIONS (2)
  - Arthralgia [None]
  - Diarrhoea [None]
